FAERS Safety Report 7304399-8 (Version None)
Quarter: 2011Q1

REPORT INFORMATION
  Report Type: 
  Country: None (occurrence: None)
  Receive Date: 20110221
  Receipt Date: 20110207
  Transmission Date: 20110831
  Serious: Yes (Hospitalization, Other)
  Sender: FDA-Public Use
  Company Number: CA-ELI_LILLY_AND_COMPANY-CA201012004752

PATIENT
  Sex: Female
  Weight: 43.537 kg

DRUGS (5)
  1. VITAMIN D [Concomitant]
     Dosage: 800 U, DAILY (1/D)
     Route: 065
  2. CALCIUM [Concomitant]
     Dosage: 600 MG, WITH 200 D, 2/D
     Route: 065
  3. FORTEO [Suspect]
     Dates: start: 20101213
  4. FORTEO [Suspect]
     Indication: OSTEOPOROSIS
     Dosage: 20 UG, DAILY (1/D)
     Route: 058
     Dates: start: 20100827, end: 20101212
  5. TYLENOL EXTENDED RELIEF [Concomitant]

REACTIONS (3)
  - PALPITATIONS [None]
  - SUPRAVENTRICULAR TACHYARRHYTHMIA [None]
  - BLOOD PRESSURE INCREASED [None]
